FAERS Safety Report 13484198 (Version 3)
Quarter: 2017Q2

REPORT INFORMATION
  Report Type: Report from Study
  Country: RU (occurrence: RU)
  Receive Date: 20170425
  Receipt Date: 20170622
  Transmission Date: 20170830
  Serious: Yes (Other)
  Sender: FDA-Public Use
  Company Number: RU-ROCHE-1923065

PATIENT
  Age: 64 Year
  Sex: Male
  Weight: 64 kg

DRUGS (29)
  1. ERALFON [Concomitant]
     Route: 058
     Dates: start: 20170328, end: 20170328
  2. ERALFON [Concomitant]
     Route: 058
     Dates: start: 20170420, end: 20170420
  3. ODESTON [Concomitant]
     Route: 048
     Dates: start: 20170429
  4. LASIX [Concomitant]
     Active Substance: FUROSEMIDE
     Indication: OEDEMA PERIPHERAL
     Route: 042
     Dates: start: 20170503
  5. MEXIDOL [Concomitant]
     Route: 030
     Dates: start: 20170502
  6. PHOSPHOGLIV [Concomitant]
     Indication: METASTASES TO LIVER
     Route: 048
     Dates: start: 2015
  7. NOLPAZA [Concomitant]
     Active Substance: PANTOPRAZOLE SODIUM
     Indication: DUODENAL ULCER
     Route: 048
     Dates: start: 2015
  8. LORATADINE. [Concomitant]
     Active Substance: LORATADINE
     Indication: RASH PAPULAR
     Route: 065
     Dates: start: 20170127
  9. HEPTOR [Concomitant]
     Indication: METASTASES TO LIVER
     Route: 048
     Dates: start: 2015, end: 20170428
  10. PANCREATIN [Concomitant]
     Active Substance: PANCRELIPASE
     Indication: PANCREATITIS CHRONIC
     Route: 048
     Dates: start: 2014
  11. ERYTHROMYCIN. [Concomitant]
     Active Substance: ERYTHROMYCIN
     Indication: RASH PAPULAR
     Route: 061
     Dates: start: 20170130
  12. HEPTRAL [Concomitant]
     Active Substance: ADEMETIONINE
     Indication: HEPATOTOXICITY
     Route: 048
     Dates: start: 20170428
  13. NORMAL SALINE [Concomitant]
     Active Substance: SODIUM CHLORIDE
     Route: 042
     Dates: start: 20170503, end: 20170503
  14. ERALFON [Concomitant]
     Indication: ANAEMIA
     Route: 058
     Dates: start: 20170321, end: 20170321
  15. ERALFON [Concomitant]
     Route: 058
     Dates: start: 20170503, end: 20170503
  16. HEPTRAL [Concomitant]
     Active Substance: ADEMETIONINE
     Route: 048
     Dates: start: 20170429
  17. ETAMSYLATE [Concomitant]
     Active Substance: ETHAMSYLATE
     Indication: ANAEMIA
     Route: 030
     Dates: start: 20170503
  18. GLUCOSE [Concomitant]
     Active Substance: DEXTROSE
     Indication: HEPATOTOXICITY
     Route: 042
     Dates: start: 20170504
  19. PREDUCTAL [Concomitant]
     Active Substance: TRIMETAZIDINE DIHYDROCHLORIDE
     Indication: MYOCARDIAL ISCHAEMIA
     Route: 048
     Dates: start: 2010
  20. ETAMSYLATE [Concomitant]
     Active Substance: ETHAMSYLATE
     Route: 030
     Dates: start: 20170504
  21. COBIMETINIB [Suspect]
     Active Substance: COBIMETINIB
     Indication: COLORECTAL ADENOCARCINOMA
     Dosage: DATE OF MOST RECENT DOSE 60 MG OF COBIMETINIB PRIOR TO EVENT ONSET 11/APR/2017
     Route: 048
     Dates: start: 20170120
  22. ATEZOLIZUMAB [Suspect]
     Active Substance: ATEZOLIZUMAB
     Indication: COLORECTAL ADENOCARCINOMA
     Dosage: DATE OF MOST RECENT DOSE 840 MG OF ATEZOLIZUMAB PRIOR TO EVENT ONSET 05/APR/2017 AT 10:50
     Route: 042
     Dates: start: 20170120
  23. HEPTRAL [Concomitant]
     Active Substance: ADEMETIONINE
     Route: 042
     Dates: start: 20170504
  24. NEBILONG [Concomitant]
     Indication: OEDEMA PERIPHERAL
     Route: 048
     Dates: start: 20170412
  25. DUSPATALIN [Concomitant]
     Active Substance: MEBEVERINE HYDROCHLORIDE
     Indication: MUSCULOSKELETAL CHEST PAIN
     Route: 048
     Dates: start: 201612
  26. TORASEMIDE [Concomitant]
     Active Substance: TORSEMIDE
     Indication: OEDEMA PERIPHERAL
     Route: 048
     Dates: start: 20170412
  27. ZILT [Concomitant]
     Indication: THROMBOSIS
     Route: 048
     Dates: start: 2015, end: 20170504
  28. CEREPRO [Concomitant]
     Indication: VERTIGO
     Route: 048
     Dates: start: 20170210, end: 20170428
  29. ERALFON [Concomitant]
     Route: 058
     Dates: start: 20170405, end: 20170405

REACTIONS (1)
  - Rhabdomyolysis [Not Recovered/Not Resolved]

NARRATIVE: CASE EVENT DATE: 20170418
